FAERS Safety Report 14353903 (Version 2)
Quarter: 2018Q1

REPORT INFORMATION
  Report Type: Report from Study
  Country: US (occurrence: US)
  Receive Date: 20180105
  Receipt Date: 20180119
  Transmission Date: 20180509
  Serious: Yes (Other)
  Sender: FDA-Public Use
  Company Number: US-TEVA-2018-US-843454

PATIENT
  Age: 7 Year
  Sex: Female

DRUGS (2)
  1. PEGASPARGASE [Concomitant]
     Active Substance: PEGASPARGASE
     Indication: ACUTE LYMPHOCYTIC LEUKAEMIA
     Route: 065
  2. VINCRISTINE [Suspect]
     Active Substance: VINCRISTINE
     Indication: ACUTE LYMPHOCYTIC LEUKAEMIA
     Dosage: ADMINISTERED IN A SALINE MINI-BAG OF 0.9% NACL
     Route: 065

REACTIONS (3)
  - Vomiting [Recovering/Resolving]
  - Headache [Recovering/Resolving]
  - Respiratory symptom [Recovering/Resolving]
